FAERS Safety Report 10833286 (Version 4)
Quarter: 2015Q4

REPORT INFORMATION
  Report Type: Report from Study
  Country: JP (occurrence: JP)
  Receive Date: 20150219
  Receipt Date: 20151124
  Transmission Date: 20160304
  Serious: Yes (Hospitalization)
  Sender: FDA-Public Use
  Company Number: JP-PFIZER INC-2015057999

PATIENT
  Age: 60 Year
  Sex: Male
  Weight: 53 kg

DRUGS (13)
  1. TAKEPRON OD [Concomitant]
     Active Substance: LANSOPRAZOLE
     Dosage: 15 MG, 1X/DAY
     Route: 048
     Dates: start: 20140508
  2. CLARITH [Concomitant]
     Active Substance: CLARITHROMYCIN
     Dosage: 200 MG, 1X/DAY
     Route: 048
     Dates: start: 20140508
  3. LACTEC [Concomitant]
     Active Substance: CALCIUM CHLORIDE ANHYDROUS\POTASSIUM CHLORIDE\SODIUM CHLORIDE\SODIUM LACTATE
     Dosage: 500 ML, 1X/DAY
     Route: 042
     Dates: start: 20140812, end: 20140829
  4. PHYSIO [Concomitant]
     Dosage: 500 ML, 1X/DAY
     Route: 042
     Dates: start: 20140814, end: 20140825
  5. XALKORI [Suspect]
     Active Substance: CRIZOTINIB
     Indication: NON-SMALL CELL LUNG CANCER
     Dosage: 250 MG, 2X/DAY
     Route: 048
     Dates: start: 20140812
  6. CARBOCISTEINE [Concomitant]
     Active Substance: CARBOCYSTEINE
     Dosage: 500 MG, 3X/DAY
     Route: 048
     Dates: start: 20140508
  7. REBAMIPIDE [Concomitant]
     Active Substance: REBAMIPIDE
     Dosage: 100 MG, 3X/DAY
     Route: 048
     Dates: start: 20140508
  8. WYSTAL [Concomitant]
     Active Substance: CEFOPERAZONE SODIUM\SULBACTAM SODIUM
     Dosage: 1 G, 2X/DAY
     Route: 041
     Dates: start: 20140813, end: 20140818
  9. PANVITAN [Concomitant]
     Dosage: 1 G, 1X/DAY
     Route: 048
     Dates: start: 20140520, end: 20140818
  10. KN NO.3 [Concomitant]
     Active Substance: DEXTROSE\POTASSIUM CHLORIDE\SODIUM CHLORIDE\SODIUM LACTATE
     Dosage: 500 ML, 1X/DAY
     Route: 042
     Dates: start: 20140811, end: 20140825
  11. SENNOSIDE [Concomitant]
     Active Substance: SENNOSIDES
     Dosage: 24 MG, 1X/DAY
     Route: 048
     Dates: start: 20140506
  12. MAGMITT [Concomitant]
     Active Substance: MAGNESIUM OXIDE
     Dosage: 1000 MG, 1X/DAY
     Route: 048
     Dates: start: 20140729
  13. PRIMPERAN [Concomitant]
     Active Substance: METOCLOPRAMIDE HYDROCHLORIDE
     Dosage: 10 MG, AS NEEDED
     Route: 042
     Dates: start: 20140811, end: 20140824

REACTIONS (1)
  - Seizure [Recovered/Resolved]

NARRATIVE: CASE EVENT DATE: 20140814
